FAERS Safety Report 8114578-8 (Version None)
Quarter: 2012Q1

REPORT INFORMATION
  Report Type: 
  Country: None (occurrence: None)
  Receive Date: 20120206
  Receipt Date: 20120201
  Transmission Date: 20120608
  Serious: Yes (Other)
  Sender: FDA-Public Use
  Company Number: US-PFIZER INC-2012028182

PATIENT
  Sex: Female
  Weight: 86.168 kg

DRUGS (2)
  1. DEPO-PROVERA [Suspect]
     Indication: CONTRACEPTION
     Dosage: 150 MG, EVERY 3 MONTHS
     Route: 030
     Dates: start: 19940101
  2. DEPO-PROVERA [Suspect]
     Dosage: UNK
     Route: 030
     Dates: end: 20110301

REACTIONS (3)
  - HORMONE LEVEL ABNORMAL [None]
  - AMENORRHOEA [None]
  - INFERTILITY FEMALE [None]
